FAERS Safety Report 8240319-X (Version None)
Quarter: 2012Q1

REPORT INFORMATION
  Report Type: 
  Country: None (occurrence: None)
  Receive Date: 20120328
  Receipt Date: 20120328
  Transmission Date: 20120608
  Serious: Yes (Disabling)
  Sender: FDA-Public Use
  Company Number: None

PATIENT
  Sex: Female
  Weight: 74 kg

DRUGS (9)
  1. ASPIRIN [Concomitant]
     Indication: ATRIAL FIBRILLATION
     Route: 048
  2. AMLODIPINE [Concomitant]
     Route: 048
  3. PEPCID [Concomitant]
     Route: 048
  4. HEPARIN [Suspect]
     Indication: DEEP VEIN THROMBOSIS
     Dosage: 9 UNITS/KG/HR
     Route: 041
     Dates: start: 20120324, end: 20120325
  5. PENTOXIFYLLINE [Concomitant]
     Route: 048
  6. WARFARIN SODIUM [Concomitant]
     Indication: DEEP VEIN THROMBOSIS
     Dosage: 5 MG
     Route: 048
     Dates: start: 20120324, end: 20120325
  7. DILTIAZEM HCL [Concomitant]
     Route: 048
  8. METOPROLOL SUCCINATE [Concomitant]
     Route: 048
  9. DIPHENHYDRAMINE HCL [Concomitant]
     Route: 048

REACTIONS (1)
  - HAEMATOMA [None]
